FAERS Safety Report 8206951-4 (Version None)
Quarter: 2012Q1

REPORT INFORMATION
  Report Type: 
  Country: None (occurrence: None)
  Receive Date: 20120314
  Receipt Date: 20120305
  Transmission Date: 20120608
  Serious: Yes (Hospitalization)
  Sender: FDA-Public Use
  Company Number: IT-JNJFOC-20120304122

PATIENT
  Sex: Female

DRUGS (8)
  1. LITHIUM CARBONATE [Suspect]
     Route: 048
     Dates: start: 20111206, end: 20111212
  2. DELORAZEPAM [Suspect]
     Indication: AFFECTIVE DISORDER
     Route: 048
     Dates: start: 20111207, end: 20111213
  3. DEPAKENE [Suspect]
     Indication: AFFECTIVE DISORDER
     Route: 048
     Dates: start: 20111206, end: 20111210
  4. DEPAKENE [Suspect]
     Route: 048
     Dates: start: 20111211, end: 20111212
  5. INVEGA [Suspect]
     Indication: AFFECTIVE DISORDER
     Route: 048
     Dates: start: 20111212, end: 20111213
  6. INVEGA [Suspect]
     Route: 048
     Dates: start: 20111207, end: 20111211
  7. LITHIUM CARBONATE [Suspect]
     Indication: AFFECTIVE DISORDER
     Route: 048
     Dates: start: 20111205, end: 20111205
  8. DEPAKENE [Suspect]
     Route: 048
     Dates: start: 20111205, end: 20111205

REACTIONS (4)
  - ANTIPSYCHOTIC DRUG LEVEL INCREASED [None]
  - CONFUSIONAL STATE [None]
  - DYSARTHRIA [None]
  - HYPERAMMONAEMIA [None]
